FAERS Safety Report 8537983-4 (Version None)
Quarter: 2012Q3

REPORT INFORMATION
  Report Type: 
  Country: None (occurrence: None)
  Receive Date: 20120725
  Receipt Date: 20120628
  Transmission Date: 20120928
  Serious: Yes (Other)
  Sender: FDA-Public Use
  Company Number: PHHY2012JP055696

PATIENT
  Age: 46 Year
  Sex: Female

DRUGS (4)
  1. AREDIA [Suspect]
     Indication: METASTASES TO BONE
     Route: 042
  2. HERCEPTIN [Concomitant]
     Indication: BREAST CANCER
     Route: 042
  3. ZOLADEX [Concomitant]
     Indication: BREAST CANCER
     Dosage: UNK
     Route: 042
  4. ZOMETA [Suspect]
     Indication: METASTASES TO BONE
     Route: 042

REACTIONS (1)
  - FEMUR FRACTURE [None]
